FAERS Safety Report 24405546 (Version 5)
Quarter: 2024Q4

REPORT INFORMATION
  Report Type: Spontaneous
  Country: US (occurrence: US)
  Receive Date: 20241007
  Receipt Date: 20241225
  Transmission Date: 20250115
  Serious: Yes (Other)
  Sender: CSL BEHRING
  Company Number: US-BEH-2024180936

PATIENT
  Age: 6 Year
  Sex: Male

DRUGS (9)
  1. IDELVION [Suspect]
     Active Substance: COAGULATION FACTOR IX RECOMBINANT HUMAN
     Indication: Factor IX deficiency
     Dosage: 950-1140 UNITS, PRN
     Route: 042
     Dates: start: 202304
  2. IDELVION [Suspect]
     Active Substance: COAGULATION FACTOR IX RECOMBINANT HUMAN
     Indication: Factor IX deficiency
     Dosage: 950-1140 UNITS, PRN
     Route: 042
     Dates: start: 202304
  3. IDELVION [Suspect]
     Active Substance: COAGULATION FACTOR IX RECOMBINANT HUMAN
     Dosage: 1900-2090 UNITS, PRN
     Route: 042
     Dates: start: 202304
  4. IDELVION [Suspect]
     Active Substance: COAGULATION FACTOR IX RECOMBINANT HUMAN
     Dosage: 1900-2090 UNITS, PRN
     Route: 042
     Dates: start: 202304
  5. IDELVION [Suspect]
     Active Substance: COAGULATION FACTOR IX RECOMBINANT HUMAN
     Dosage: 2100-2310 UNITS (EVERY MONDAY AND THURSDAY FOR 4 WEEKS)
     Route: 042
     Dates: start: 202304
  6. IDELVION [Suspect]
     Active Substance: COAGULATION FACTOR IX RECOMBINANT HUMAN
     Dosage: 2100-2310 UNITS (EVERY MONDAY AND THURSDAY FOR 4 WEEKS)
     Route: 042
     Dates: start: 202304
  7. IDELVION [Suspect]
     Active Substance: COAGULATION FACTOR IX RECOMBINANT HUMAN
     Dosage: 1000 IU
     Route: 065
  8. IDELVION [Suspect]
     Active Substance: COAGULATION FACTOR IX RECOMBINANT HUMAN
     Dosage: 1000 IU
     Route: 065
  9. AMINOCAPROIC ACID [Concomitant]
     Active Substance: AMINOCAPROIC ACID
     Route: 048

REACTIONS (4)
  - Muscle haemorrhage [Recovered/Resolved]
  - Pain [Unknown]
  - Poor venous access [Unknown]
  - Product container issue [Unknown]

NARRATIVE: CASE EVENT DATE: 20240923
